FAERS Safety Report 14613034 (Version 1)
Quarter: 2018Q1

REPORT INFORMATION
  Report Type: Spontaneous
  Country: IL (occurrence: IL)
  Receive Date: 20180308
  Receipt Date: 20180308
  Transmission Date: 20180509
  Serious: Yes (Life-Threatening, Hospitalization)
  Sender: FDA-Public Use
  Company Number: IL-JNJFOC-20180307232

PATIENT
  Age: 59 Year
  Sex: Male

DRUGS (1)
  1. XARELTO [Suspect]
     Active Substance: RIVAROXABAN
     Indication: PRODUCT USED FOR UNKNOWN INDICATION
     Route: 048

REACTIONS (18)
  - Reticulocytosis [Unknown]
  - Hepatic function abnormal [Unknown]
  - Fall [Unknown]
  - Nasogastric output abnormal [Unknown]
  - Haemoglobin decreased [Unknown]
  - Respiratory acidosis [Unknown]
  - Haemodynamic instability [Unknown]
  - Hypotension [Unknown]
  - Renal impairment [Unknown]
  - Metabolic acidosis [Recovering/Resolving]
  - Anaemia [Unknown]
  - Hyperkalaemia [Unknown]
  - Overdose [Unknown]
  - Dysstasia [Unknown]
  - Asthenia [Unknown]
  - Depressed level of consciousness [Unknown]
  - Blood lactic acid increased [Recovering/Resolving]
  - Melaena [Unknown]

NARRATIVE: CASE EVENT DATE: 20170227
